FAERS Safety Report 12707786 (Version 1)
Quarter: 2016Q3

REPORT INFORMATION
  Report Type: Spontaneous
  Country: US (occurrence: US)
  Receive Date: 20160901
  Receipt Date: 20160901
  Transmission Date: 20161109
  Serious: Yes (Other)
  Sender: FDA-Public Use
  Company Number: US-ELI_LILLY_AND_COMPANY-US201608012545

PATIENT
  Age: 59 Year
  Sex: Female

DRUGS (9)
  1. AMBRISENTAN [Suspect]
     Active Substance: AMBRISENTAN
     Indication: PULMONARY ARTERIAL HYPERTENSION
     Dosage: 5 MG, QD
     Route: 065
     Dates: start: 20160728
  2. LASIX [Concomitant]
     Active Substance: FUROSEMIDE
  3. NIACIN. [Concomitant]
     Active Substance: NIACIN
  4. FLAXSEED [Concomitant]
     Active Substance: FLAX SEED
  5. FISH OIL [Concomitant]
     Active Substance: FISH OIL
  6. CO Q 10                            /00517201/ [Concomitant]
  7. MULTIVITAMIN                       /00097801/ [Concomitant]
     Active Substance: VITAMINS
  8. ASPIRIN                            /00002701/ [Concomitant]
     Active Substance: ASPIRIN
  9. ADCIRCA [Suspect]
     Active Substance: TADALAFIL
     Indication: PRODUCT USED FOR UNKNOWN INDICATION
     Dosage: UNK, UNKNOWN
     Route: 065

REACTIONS (1)
  - Lower respiratory tract congestion [Unknown]
